FAERS Safety Report 10016836 (Version 2)
Quarter: 2014Q2

REPORT INFORMATION
  Report Type: Spontaneous
  Country: US (occurrence: US)
  Receive Date: 20140318
  Receipt Date: 20140408
  Transmission Date: 20141212
  Serious: Yes (Hospitalization)
  Sender: FDA-Public Use
  Company Number: US-AMGEN-USASP2014017555

PATIENT
  Age: 63 Year
  Sex: Male

DRUGS (1)
  1. ENBREL [Suspect]
     Indication: HIDRADENITIS
     Dosage: UNK UNK, 2 TIMES/WK
     Route: 065
     Dates: start: 20060101, end: 201210

REACTIONS (1)
  - Hidradenitis [Recovered/Resolved]
